FAERS Safety Report 18044133 (Version 1)
Quarter: 2020Q3

REPORT INFORMATION
  Report Type: Other
  Country: CA (occurrence: CA)
  Receive Date: 20200720
  Receipt Date: 20200720
  Transmission Date: 20201103
  Serious: Yes (Disabling)
  Sender: FDA-Public Use
  Company Number: CA-APOTEX-2020AP013656

PATIENT
  Age: 33 Year
  Sex: Female
  Weight: 81.63 kg

DRUGS (3)
  1. APO?MIRTAZAPINE [Suspect]
     Active Substance: MIRTAZAPINE
     Indication: ANXIETY
  2. APO?MIRTAZAPINE [Suspect]
     Active Substance: MIRTAZAPINE
     Indication: DEPRESSION
  3. APO?MIRTAZAPINE [Suspect]
     Active Substance: MIRTAZAPINE
     Indication: POST-TRAUMATIC STRESS DISORDER
     Dosage: 45 MILLIGRAM, QD
     Route: 048

REACTIONS (6)
  - Exposure during pregnancy [Unknown]
  - Affective disorder [Unknown]
  - Post-traumatic stress disorder [Unknown]
  - Product substitution issue [Unknown]
  - Condition aggravated [Unknown]
  - Anxiety [Unknown]
